FAERS Safety Report 9916720 (Version 2)
Quarter: 2014Q1

REPORT INFORMATION
  Report Type: Spontaneous
  Country: US (occurrence: US)
  Receive Date: 20140221
  Receipt Date: 20140326
  Transmission Date: 20141002
  Serious: Yes (Congenital Anomaly, Other)
  Sender: FDA-Public Use
  Company Number: US-PFIZER INC-2014049248

PATIENT
  Sex: Male

DRUGS (5)
  1. ZOLOFT [Suspect]
     Dosage: UNK
     Route: 064
     Dates: start: 20060119
  2. HYDROCODONE APAP [Concomitant]
     Dosage: UNK
     Route: 064
  3. XANAX [Concomitant]
     Dosage: UNK
     Route: 064
  4. AMOXICILLIN [Concomitant]
     Dosage: UNK
     Route: 064
  5. PRENATAL VITAMINS [Concomitant]
     Dosage: UNK
     Route: 064

REACTIONS (15)
  - Maternal exposure during pregnancy [Unknown]
  - Patent ductus arteriosus [Unknown]
  - Congenital pulmonary hypertension [Unknown]
  - Pulmonary vein stenosis [Unknown]
  - Hypospadias [Unknown]
  - Cerebral palsy [Unknown]
  - Umbilical cord abnormality [Unknown]
  - Atrial septal defect [Unknown]
  - Penile curvature [Unknown]
  - Strabismus congenital [Unknown]
  - Strabismus [Unknown]
  - Gastric hypomotility [Unknown]
  - Developmental delay [Unknown]
  - Speech disorder [Unknown]
  - Limb asymmetry [Unknown]
